FAERS Safety Report 4481640-0 (Version None)
Quarter: 2004Q3

REPORT INFORMATION
  Report Type: 
  Country: None (occurrence: None)
  Receive Date: 20040921
  Receipt Date: 20010717
  Transmission Date: 20050211
  Serious: Yes (Other)
  Sender: FDA-Public Use
  Company Number: 2001-07-0064(0)

PATIENT
  Age: 47 Year
  Sex: Female

DRUGS (1)
  1. THALOMID [Suspect]
     Indication: RENAL CELL CARCINOMA STAGE UNSPECIFIED
     Dosage: 400 MG, DAILY, ORAL
     Route: 048
     Dates: start: 20010401, end: 20010601

REACTIONS (1)
  - NEUTROPENIA [None]
